FAERS Safety Report 17446456 (Version 1)
Quarter: 2020Q1

REPORT INFORMATION
  Report Type: Spontaneous
  Country: US (occurrence: US)
  Receive Date: 20200221
  Receipt Date: 20200221
  Transmission Date: 20200409
  Serious: No
  Sender: FDA-Public Use
  Company Number: US-BRACCO-2019US05870

PATIENT
  Sex: Female

DRUGS (1)
  1. ISOVUE-M 300 [Suspect]
     Active Substance: IOPAMIDOL
     Indication: SPINAL MYELOGRAM
     Dosage: 8 ML, SINGLE
     Route: 037
     Dates: start: 20191113, end: 20191113

REACTIONS (2)
  - Tremor [Recovered/Resolved]
  - Muscle twitching [Recovered/Resolved]

NARRATIVE: CASE EVENT DATE: 20191113
